FAERS Safety Report 7434010-7 (Version None)
Quarter: 2011Q2

REPORT INFORMATION
  Report Type: 
  Country: None (occurrence: None)
  Receive Date: 20110420
  Receipt Date: 20110420
  Transmission Date: 20111010
  Serious: Yes (Hospitalization, Disabling)
  Sender: FDA-Public Use
  Company Number: None

PATIENT
  Age: 74 Year
  Weight: 73.0291 kg

DRUGS (1)
  1. AVELOX [Suspect]
     Indication: COUGH
     Dosage: 1
     Dates: start: 20110418, end: 20110418

REACTIONS (4)
  - THROAT TIGHTNESS [None]
  - HEART RATE INCREASED [None]
  - ERYTHEMA [None]
  - PRURITUS [None]
